FAERS Safety Report 14671162 (Version 1)
Quarter: 2018Q1

REPORT INFORMATION
  Report Type: Spontaneous
  Country: US (occurrence: US)
  Receive Date: 20180322
  Receipt Date: 20180322
  Transmission Date: 20180509
  Serious: Yes (Hospitalization)
  Sender: FDA-Public Use
  Company Number: None

PATIENT
  Age: 46 Year
  Sex: Male
  Weight: 124 kg

DRUGS (7)
  1. MERCAPTOPURINE. [Suspect]
     Active Substance: MERCAPTOPURINE
     Dates: end: 20180225
  2. DEXAMETHASONE. [Suspect]
     Active Substance: DEXAMETHASONE
     Dates: end: 20171221
  3. CYTARABINE. [Suspect]
     Active Substance: CYTARABINE
     Dates: end: 20180222
  4. ONCASPAR [Suspect]
     Active Substance: PEGASPARGASE
     Dates: end: 20171218
  5. VINCRISTINE SULFATE. [Suspect]
     Active Substance: VINCRISTINE SULFATE
     Dates: end: 20171222
  6. ACYCLOVIR. [Concomitant]
     Active Substance: ACYCLOVIR
  7. METHOTREXATE. [Suspect]
     Active Substance: METHOTREXATE
     Dates: end: 20180302

REACTIONS (2)
  - Hyperbilirubinaemia [None]
  - Febrile neutropenia [None]

NARRATIVE: CASE EVENT DATE: 20180307
